FAERS Safety Report 21954640 (Version 1)
Quarter: 2023Q1

REPORT INFORMATION
  Report Type: Spontaneous
  Country: US (occurrence: US)
  Receive Date: 20230205
  Receipt Date: 20230205
  Transmission Date: 20230417
  Serious: No
  Sender: FDA-Public Use
  Company Number: US-SA-SAC20230202001393

PATIENT
  Sex: Female

DRUGS (16)
  1. DUPIXENT [Suspect]
     Active Substance: DUPILUMAB
     Indication: Neurodermatitis
     Dosage: 600 MG, 1X
     Route: 058
  2. DUPIXENT [Suspect]
     Active Substance: DUPILUMAB
     Dosage: 300 MG, QOW
     Route: 058
  3. AMLODIPINE [Concomitant]
     Active Substance: AMLODIPINE BESYLATE
  4. CALCITRIOL [Concomitant]
     Active Substance: CALCITRIOL
  5. HYDROXYZINE [Concomitant]
     Active Substance: HYDROXYZINE HYDROCHLORIDE
  6. JARDIANCE [Concomitant]
     Active Substance: EMPAGLIFLOZIN
  7. LANTUS SOLOSTAR [Concomitant]
     Active Substance: INSULIN GLARGINE
  8. LOSARTAN POTASSIUM [Concomitant]
     Active Substance: LOSARTAN POTASSIUM
  9. MIRTAZAPINE [Concomitant]
     Active Substance: MIRTAZAPINE
  10. MYRBETRIQ [Concomitant]
     Active Substance: MIRABEGRON
  11. NOVOLOG [Concomitant]
     Active Substance: INSULIN ASPART
  12. FERROUS SULFATE [Concomitant]
     Active Substance: FERROUS SULFATE
  13. OMEPRAZOLE [Concomitant]
     Active Substance: OMEPRAZOLE
  14. ROPINIROLE [Concomitant]
     Active Substance: ROPINIROLE
  15. TOPIRAMATE [Concomitant]
     Active Substance: TOPIRAMATE
  16. VENLAFAXINE [Concomitant]
     Active Substance: VENLAFAXINE HYDROCHLORIDE

REACTIONS (1)
  - Blood glucose increased [Unknown]
